FAERS Safety Report 8028494-3 (Version None)
Quarter: 2012Q1

REPORT INFORMATION
  Report Type: 
  Country: None (occurrence: None)
  Receive Date: 20120104
  Receipt Date: 20111222
  Transmission Date: 20120608
  Serious: Yes (Death, Hospitalization)
  Sender: FDA-Public Use
  Company Number: ACO_28429_2004

PATIENT
  Age: 61 Year
  Sex: Male

DRUGS (9)
  1. VANCOCIN (VANCOMYCIN HYDROCHLORIDE) [Concomitant]
  2. ZANAFLEX [Suspect]
     Indication: MUSCLE SPASTICITY
     Dosage: ORAL, 4 MG, ORAL
     Route: 048
     Dates: start: 20031014, end: 20031015
  3. ACETAMINOPHEN [Concomitant]
  4. NEURONTIN [Concomitant]
  5. LOVENOX [Concomitant]
  6. DIOVOL (ALUMINIUM HYDROXIDE, DIMETICONE, MAGNESIUM HYDROXIDE) [Concomitant]
  7. ATIVAN [Concomitant]
  8. FLAGYL [Concomitant]
  9. VALIUM [Concomitant]

REACTIONS (4)
  - VENTRICULAR FIBRILLATION [None]
  - MYOCARDIAL INFARCTION [None]
  - RESPIRATORY TRACT INFECTION [None]
  - RASH [None]
